FAERS Safety Report 23060160 (Version 1)
Quarter: 2023Q4

REPORT INFORMATION
  Report Type: Spontaneous
  Country: JP (occurrence: None)
  Receive Date: 20231012
  Receipt Date: 20231012
  Transmission Date: 20240109
  Serious: Yes (Death, Hospitalization)
  Sender: FDA-Public Use
  Company Number: 2023A225795

PATIENT
  Age: 62 Year
  Sex: Female

DRUGS (1)
  1. FASENRA [Suspect]
     Active Substance: BENRALIZUMAB
     Indication: Asthma
     Dosage: DOSE UNKNOWN
     Route: 058
     Dates: end: 20230623

REACTIONS (4)
  - Cardiac arrest [Fatal]
  - Asthma [Unknown]
  - COVID-19 [Unknown]
  - Inappropriate schedule of product administration [Unknown]

NARRATIVE: CASE EVENT DATE: 20230701
